FAERS Safety Report 5834006-2 (Version None)
Quarter: 2008Q3

REPORT INFORMATION
  Report Type: 
  Country: None (occurrence: None)
  Receive Date: 20080804
  Receipt Date: 20080804
  Transmission Date: 20090109
  Serious: Yes (Other)
  Sender: FDA-Public Use
  Company Number: None

PATIENT
  Age: 56 Year
  Sex: Male
  Weight: 113.3993 kg

DRUGS (1)
  1. METOPROLOL TARTRATE [Suspect]
     Indication: HYPERTENSION
     Dosage: 150 MG DAILY PO
     Route: 048
     Dates: start: 20060601, end: 20080401

REACTIONS (3)
  - BLOOD PRESSURE INCREASED [None]
  - DRUG INEFFECTIVE [None]
  - THERAPEUTIC RESPONSE UNEXPECTED WITH DRUG SUBSTITUTION [None]
